FAERS Safety Report 25145741 (Version 1)
Quarter: 2025Q2

REPORT INFORMATION
  Report Type: Spontaneous
  Country: US (occurrence: US)
  Receive Date: 20250401
  Receipt Date: 20250401
  Transmission Date: 20250717
  Serious: Yes (Hospitalization, Other)
  Sender: OXFORD PHARMACEUTICALS
  Company Number: US-Oxford Pharmaceuticals, LLC-2174011

PATIENT
  Age: 59 Year
  Sex: Female

DRUGS (2)
  1. SOTALOL HYDROCHLORIDE [Suspect]
     Active Substance: SOTALOL HYDROCHLORIDE
     Indication: Product used for unknown indication
  2. ACETAMINOPHEN [Suspect]
     Active Substance: ACETAMINOPHEN

REACTIONS (9)
  - Suicide attempt [Unknown]
  - Hypotensive crisis [Unknown]
  - Electrocardiogram ST segment elevation [Unknown]
  - Ventricular extrasystoles [Unknown]
  - Torsade de pointes [Unknown]
  - Cardiac arrest [Unknown]
  - Ventricular tachycardia [Unknown]
  - Sinus arrhythmia [Unknown]
  - Intentional overdose [Unknown]
